FAERS Safety Report 7941770-5 (Version None)
Quarter: 2011Q4

REPORT INFORMATION
  Report Type: 
  Country: None (occurrence: None)
  Receive Date: 20111128
  Receipt Date: 20111001
  Transmission Date: 20120403
  Serious: No
  Sender: FDA-Public Use
  Company Number: US-BAYER-2011-095040

PATIENT
  Age: 23 Year
  Sex: Female

DRUGS (2)
  1. ALEVE (CAPLET) [Suspect]
     Indication: DYSMENORRHOEA
     Route: 048
  2. ALEVE (CAPLET) [Suspect]
     Indication: MUSCLE SPASMS

REACTIONS (1)
  - DYSMENORRHOEA [None]
